FAERS Safety Report 7762922-3 (Version None)
Quarter: 2011Q3

REPORT INFORMATION
  Report Type: 
  Country: None (occurrence: None)
  Receive Date: 20110920
  Receipt Date: 20110906
  Transmission Date: 20111222
  Serious: Yes (Hospitalization)
  Sender: FDA-Public Use
  Company Number: PHHO2011DE11626

PATIENT
  Sex: Female
  Weight: 62 kg

DRUGS (4)
  1. L-THYROX 50 [Concomitant]
     Indication: THYROIDECTOMY
     Dosage: 24 MG, QD
     Route: 048
     Dates: start: 20050101
  2. XELODA [Suspect]
     Indication: BREAST CANCER
     Dosage: 2600 MG, QD
     Route: 048
     Dates: start: 20110609, end: 20110701
  3. BISOPROLOL FUMARATE [Concomitant]
     Indication: HYPERTENSION
     Dosage: 2.5 MG, QD
     Route: 048
     Dates: start: 19910101
  4. DOCETAXEL [Suspect]
     Dosage: 122.25
     Route: 042
     Dates: start: 20110609, end: 20110630

REACTIONS (9)
  - PANCREATIC ATROPHY [None]
  - RENAL FAILURE [None]
  - MULTI-ORGAN FAILURE [None]
  - COLITIS [None]
  - FEBRILE NEUTROPENIA [None]
  - ENTEROCOLITIS INFECTIOUS [None]
  - PANCREATITIS [None]
  - GENERAL PHYSICAL HEALTH DETERIORATION [None]
  - PLEURAL EFFUSION [None]
